FAERS Safety Report 11311350 (Version 2)
Quarter: 2015Q3

REPORT INFORMATION
  Report Type: Report from Study
  Country: BR (occurrence: BR)
  Receive Date: 20150727
  Receipt Date: 20150904
  Transmission Date: 20151125
  Serious: Yes (Other)
  Sender: FDA-Public Use
  Company Number: PHHY2015BR086617

PATIENT
  Age: 54 Year
  Sex: Female
  Weight: 90 kg

DRUGS (2)
  1. DIOVAN TRIPLE [Suspect]
     Active Substance: AMLODIPINE BESYLATE\HYDROCHLOROTHIAZIDE\VALSARTAN
     Indication: HYPERTENSION
     Dosage: 1 DF, QD
     Route: 065
  2. NOVALGIN [Suspect]
     Active Substance: METAMIZOLE SODIUM
     Indication: HEADACHE
     Dosage: 45 DROPS, ONCE
     Route: 065
     Dates: start: 20150630, end: 20150630

REACTIONS (4)
  - Blood pressure increased [Recovering/Resolving]
  - Myocardial infarction [Unknown]
  - Headache [Unknown]
  - Hyperhidrosis [Unknown]

NARRATIVE: CASE EVENT DATE: 20150630
